FAERS Safety Report 4582211-8 (Version None)
Quarter: 2005Q1

REPORT INFORMATION
  Report Type: 
  Country: None (occurrence: None)
  Receive Date: 20050214
  Receipt Date: 20050131
  Transmission Date: 20050727
  Serious: Yes (Other)
  Sender: FDA-Public Use
  Company Number: 2005022456

PATIENT
  Sex: Female

DRUGS (1)
  1. CHILDREN'S PEDIACARE LONG ACTING COUGH PLUS COLD (PSEUDOEPHEDRINE, DEX [Suspect]
     Dosage: UNSPECIFIED AMOUNT, ORAL
     Route: 048
     Dates: start: 20040101

REACTIONS (2)
  - SWELLING FACE [None]
  - URTICARIA [None]
